FAERS Safety Report 7347156-9 (Version None)
Quarter: 2011Q1

REPORT INFORMATION
  Report Type: 
  Country: None (occurrence: None)
  Receive Date: 20110303
  Receipt Date: 20110217
  Transmission Date: 20110831
  Serious: Yes (Death)
  Sender: FDA-Public Use
  Company Number: AE 2011-067

PATIENT
  Age: 55 Year
  Sex: Male

DRUGS (1)
  1. FAZACLO ODT [Suspect]
     Indication: SCHIZOPHRENIA
     Dosage: 700 MG DAILY PO
     Route: 048
     Dates: start: 20060829, end: 20110214

REACTIONS (1)
  - LUNG NEOPLASM MALIGNANT [None]
